FAERS Safety Report 5059124-0 (Version None)
Quarter: 2006Q3

REPORT INFORMATION
  Report Type: 
  Country: None (occurrence: None)
  Receive Date: 20060718
  Receipt Date: 20060706
  Transmission Date: 20061208
  Serious: Yes (Hospitalization)
  Sender: FDA-Public Use
  Company Number: 2006PV016246

PATIENT
  Age: 71 Year
  Sex: Female
  Weight: 77.1115 kg

DRUGS (12)
  1. BYETTA [Suspect]
     Indication: DIABETES MELLITUS NON-INSULIN-DEPENDENT
     Dosage: SEE IMAGE
     Route: 058
     Dates: start: 20060501, end: 20060601
  2. BYETTA [Suspect]
     Indication: DIABETES MELLITUS NON-INSULIN-DEPENDENT
     Dosage: SEE IMAGE
     Route: 058
     Dates: start: 20060601
  3. TOPAMAX [Concomitant]
  4. NEURONTIN [Concomitant]
  5. ZETIA [Concomitant]
  6. PRIMIDONE [Concomitant]
  7. ATENOLOL [Concomitant]
  8. CRESTOR [Concomitant]
  9. TRAZODONE HCL [Concomitant]
  10. SYNTHROID [Concomitant]
  11. IMIPRAMINE [Concomitant]
  12. MAGNESIUM [Concomitant]

REACTIONS (1)
  - MEDICAL DEVICE IMPLANTATION [None]
